FAERS Safety Report 9922934 (Version 2)
Quarter: 2014Q1

REPORT INFORMATION
  Report Type: Report from Study
  Country: US (occurrence: US)
  Receive Date: 20140225
  Receipt Date: 20140228
  Transmission Date: 20141002
  Serious: No
  Sender: FDA-Public Use
  Company Number: US-ABBVIE-13P-163-1173380-00

PATIENT
  Age: 63 Year
  Sex: Male
  Weight: 108.96 kg

DRUGS (6)
  1. ANDROGEL [Suspect]
     Indication: BLOOD TESTOSTERONE DECREASED
     Route: 061
     Dates: start: 201308
  2. ANDROGEL [Suspect]
     Route: 061
  3. ANDROGEL [Suspect]
     Route: 061
  4. ANDROGEL [Suspect]
     Indication: PRODUCT USED FOR UNKNOWN INDICATION
     Dosage: UNKNOWN PACKETS
     Dates: start: 2012, end: 201309
  5. ANDROGEL [Suspect]
     Dosage: UNKNOWN SIZE 1 PACKET DAILY
     Route: 061
  6. UNKNOWN GENERIC MEDICATION [Concomitant]
     Indication: BENIGN PROSTATIC HYPERPLASIA

REACTIONS (1)
  - Blood testosterone decreased [Not Recovered/Not Resolved]
